FAERS Safety Report 21996905 (Version 1)
Quarter: 2023Q1

REPORT INFORMATION
  Report Type: Spontaneous
  Country: US (occurrence: US)
  Receive Date: 20230215
  Receipt Date: 20230215
  Transmission Date: 20230418
  Serious: No
  Sender: FDA-Public Use
  Company Number: US-Blueprint Medicines Corporation-831

PATIENT
  Sex: Female

DRUGS (3)
  1. AYVAKIT [Suspect]
     Active Substance: AVAPRITINIB
     Indication: Systemic mastocytosis
     Route: 065
     Dates: start: 20220613
  2. AYVAKIT [Suspect]
     Active Substance: AVAPRITINIB
     Indication: Multiple sclerosis
  3. AYVAKIT [Suspect]
     Active Substance: AVAPRITINIB
     Indication: Rheumatoid arthritis

REACTIONS (2)
  - Unevaluable event [Unknown]
  - Off label use [Unknown]
